FAERS Safety Report 12552761 (Version 5)
Quarter: 2016Q4

REPORT INFORMATION
  Report Type: Spontaneous
  Country: US (occurrence: US)
  Receive Date: 20160713
  Receipt Date: 20161103
  Transmission Date: 20170207
  Serious: Yes (Hospitalization, Other)
  Sender: FDA-Public Use
  Company Number: US-PFIZER INC-2016335527

PATIENT
  Age: 54 Year
  Sex: Male
  Weight: 68 kg

DRUGS (2)
  1. LYRICA [Suspect]
     Active Substance: PREGABALIN
     Indication: NEUROPATHY PERIPHERAL
     Dosage: 200 MG, 3X/DAY
     Dates: start: 2010
  2. GABAPENTIN. [Suspect]
     Active Substance: GABAPENTIN
     Indication: NEUROPATHY PERIPHERAL
     Dosage: 800 MG, 4X/DAY
     Dates: start: 2014

REACTIONS (6)
  - Cerebrovascular accident [Recovering/Resolving]
  - Pain [Not Recovered/Not Resolved]
  - Splenic infarction [Not Recovered/Not Resolved]
  - Product use issue [Unknown]
  - Venous occlusion [Recovered/Resolved]
  - Speech disorder [Not Recovered/Not Resolved]

NARRATIVE: CASE EVENT DATE: 2015
